FAERS Safety Report 9896275 (Version 1)
Quarter: 2014Q1

REPORT INFORMATION
  Report Type: Spontaneous
  Country: US (occurrence: US)
  Receive Date: 20140213
  Receipt Date: 20140213
  Transmission Date: 20141002
  Serious: No
  Sender: FDA-Public Use
  Company Number: US-BRISTOL-MYERS SQUIBB COMPANY-18816884

PATIENT
  Age: 81 Year
  Sex: Female
  Weight: 48.98 kg

DRUGS (14)
  1. ABATACEPT SUBQ INJECTION 125MG/ML [Suspect]
     Indication: RHEUMATOID ARTHRITIS
     Route: 058
  2. NEXIUM [Concomitant]
  3. CITRICAL [Concomitant]
  4. LOSARTAN [Concomitant]
  5. FOLIC ACID [Concomitant]
  6. FENTANYL [Concomitant]
  7. HYDROCORTISONE CREAM [Concomitant]
  8. MODAFINIL [Concomitant]
  9. FEXOFENADINE HCL [Concomitant]
  10. DURAGESIC [Concomitant]
  11. METHOTREXATE [Concomitant]
  12. OXYCODONE [Concomitant]
  13. PREDNISONE [Concomitant]
  14. VITAMIN D [Concomitant]

REACTIONS (1)
  - Fatigue [Unknown]
